FAERS Safety Report 5924515-X (Version None)
Quarter: 2008Q4

REPORT INFORMATION
  Report Type: 
  Country: None (occurrence: None)
  Receive Date: 20081020
  Receipt Date: 20081008
  Transmission Date: 20090506
  Serious: Yes (Other)
  Sender: FDA-Public Use
  Company Number: US-PFIZER INC-2008085178

PATIENT
  Sex: Female

DRUGS (9)
  1. LYRICA [Suspect]
     Indication: NEURALGIA
     Dates: start: 20070926, end: 20071001
  2. LYRICA [Interacting]
     Indication: CONVULSION
  3. LYRICA [Interacting]
     Indication: FIBROMYALGIA
  4. LITHIUM [Interacting]
  5. FLEXERIL [Concomitant]
     Indication: MUSCLE DISORDER
  6. TRIAMTERENE [Concomitant]
  7. SYNTHROID [Concomitant]
     Indication: THYROID DISORDER
  8. NASAL PREPARATIONS [Concomitant]
     Indication: SINUS DISORDER
  9. ALL OTHER THERAPEUTIC PRODUCTS [Concomitant]

REACTIONS (9)
  - ADVERSE REACTION [None]
  - APTYALISM [None]
  - CONVULSION [None]
  - DRUG INEFFECTIVE [None]
  - DRUG INTERACTION [None]
  - DRY MOUTH [None]
  - OEDEMA PERIPHERAL [None]
  - TONGUE DISORDER [None]
  - TREMOR [None]
